FAERS Safety Report 23210003 (Version 1)
Quarter: 2023Q4

REPORT INFORMATION
  Report Type: Spontaneous
  Country: JP (occurrence: JP)
  Receive Date: 20231121
  Receipt Date: 20231121
  Transmission Date: 20240109
  Serious: Yes (Life-Threatening, Hospitalization, Other)
  Sender: FDA-Public Use
  Company Number: None

PATIENT
  Age: 61 Year
  Sex: Female

DRUGS (9)
  1. TACROLIMUS [Suspect]
     Active Substance: TACROLIMUS
     Indication: Anti-SRP antibody positive
     Dosage: 2 MG/DAY (EVERY 1 DAY)
     Route: 048
  2. TACROLIMUS [Suspect]
     Active Substance: TACROLIMUS
     Indication: Immune-mediated myositis
  3. VENOGLOBULIN IH [Suspect]
     Active Substance: HUMAN IMMUNOGLOBULIN G
     Indication: Haemolytic anaemia
     Dosage: 0.4 GRAM PER KILOGRAM, QD (FOR 5 CONSECUTIVE DAYS) (EVERY 1 DAY)
     Route: 042
  4. VENOGLOBULIN IH [Suspect]
     Active Substance: HUMAN IMMUNOGLOBULIN G
     Indication: Anti-SRP antibody positive
  5. VENOGLOBULIN IH [Suspect]
     Active Substance: HUMAN IMMUNOGLOBULIN G
     Indication: Immune-mediated myositis
  6. METHYLPREDNISOLONE [Concomitant]
     Active Substance: METHYLPREDNISOLONE
     Indication: Muscle strength abnormal
     Dosage: 1 G/DAY FOR 3 CONSECUTIVE DAYS (TWO COURSES) (EVERY 1 DAY)
     Route: 042
  7. METHYLPREDNISOLONE [Concomitant]
     Active Substance: METHYLPREDNISOLONE
     Indication: Immune-mediated myositis
     Dosage: UNK (TWO COURSES)
     Route: 042
  8. METHYLPREDNISOLONE [Concomitant]
     Active Substance: METHYLPREDNISOLONE
     Indication: Anti-SRP antibody positive
  9. METHYLPREDNISOLONE [Concomitant]
     Active Substance: METHYLPREDNISOLONE
     Indication: Myopathy

REACTIONS (6)
  - Renal artery stenosis [Unknown]
  - Renal ischaemia [Unknown]
  - Renal artery occlusion [Unknown]
  - Renal necrosis [Unknown]
  - Thrombotic microangiopathy [Unknown]
  - Renal failure [Unknown]
